FAERS Safety Report 6550197-2 (Version None)
Quarter: 2010Q1

REPORT INFORMATION
  Report Type: 
  Country: None (occurrence: None)
  Receive Date: 20100125
  Receipt Date: 20100111
  Transmission Date: 20100710
  Serious: Yes (Other)
  Sender: FDA-Public Use
  Company Number: US-PFIZER INC-2010007865

PATIENT
  Sex: Female
  Weight: 72.562 kg

DRUGS (2)
  1. XANAX [Suspect]
     Indication: POST-TRAUMATIC STRESS DISORDER
     Dosage: 3 MG, 1X/DAY
     Route: 048
  2. XANAX [Suspect]
     Indication: GENERALISED ANXIETY DISORDER

REACTIONS (2)
  - DEPENDENCE [None]
  - ROAD TRAFFIC ACCIDENT [None]
